FAERS Safety Report 7089544-4 (Version None)
Quarter: 2010Q4

REPORT INFORMATION
  Report Type: 
  Country: None (occurrence: None)
  Receive Date: 20101108
  Receipt Date: 20101026
  Transmission Date: 20110411
  Serious: Yes (Hospitalization)
  Sender: FDA-Public Use
  Company Number: US-ELI_LILLY_AND_COMPANY-US201006007836

PATIENT
  Sex: Female

DRUGS (8)
  1. FORTEO [Suspect]
     Indication: OSTEOPOROSIS
     Dosage: 20 UG, DAILY (1/D)
  2. NEURONTIN [Concomitant]
     Dosage: 300 MG, DAILY (1/D)
  3. CITALOPRAM [Concomitant]
     Dosage: 20 MG, DAILY (1/D)
  4. PROMETHAZINE [Concomitant]
     Dosage: 25 MG, AS NEEDED
  5. LORAZEPAM [Concomitant]
     Dosage: 0.5 MG, UNK
  6. RANITIDINE [Concomitant]
     Dosage: 300 MG, DAILY (1/D)
  7. AMITRIPTYLINE HCL [Concomitant]
     Dosage: 1 MG, EACH EVENING
  8. HYDROCODONE BITARTRATE [Concomitant]
     Dosage: UNK, 2/D

REACTIONS (13)
  - ABDOMINAL DISTENSION [None]
  - ABDOMINAL INFECTION [None]
  - ABDOMINAL PAIN [None]
  - ARTHRALGIA [None]
  - ARTHRITIS [None]
  - CONSTIPATION [None]
  - INTESTINAL OBSTRUCTION [None]
  - MALAISE [None]
  - NUTRITIONAL CONDITION ABNORMAL [None]
  - PAIN [None]
  - PAIN IN EXTREMITY [None]
  - POSTOPERATIVE ADHESION [None]
  - WEIGHT DECREASED [None]
